FAERS Safety Report 4554704-0 (Version None)
Quarter: 2005Q1

REPORT INFORMATION
  Report Type: 
  Country: None (occurrence: None)
  Receive Date: 20050114
  Receipt Date: 20040701
  Transmission Date: 20050727
  Serious: Yes (Other)
  Sender: FDA-Public Use
  Company Number: GXKR2004FR00507

PATIENT
  Age: 60 Year
  Sex: Female

DRUGS (1)
  1. CAPTOPRIL AND HYDROCHLOROTHIAZIDE [Suspect]
     Indication: HYPERTENSION
     Dosage: ORAL
     Route: 048

REACTIONS (1)
  - RENAL DISORDER [None]
